FAERS Safety Report 6819914-8 (Version None)
Quarter: 2010Q2

REPORT INFORMATION
  Report Type: 
  Country: None (occurrence: None)
  Receive Date: 20100630
  Receipt Date: 20100614
  Transmission Date: 20101027
  Serious: Yes (Other)
  Sender: FDA-Public Use
  Company Number: APP201000534

PATIENT
  Age: 24 Year
  Sex: Male

DRUGS (4)
  1. IDARUBICIN HCL [Suspect]
     Indication: ACUTE PROMYELOCYTIC LEUKAEMIA
     Dosage: 4 DOSES
     Dates: start: 20091005, end: 20091011
  2. TRISENOX [Suspect]
     Indication: ACUTE PROMYELOCYTIC LEUKAEMIA
     Dosage: 12.15 MG, 5 IN 1 WK, INTRAVENOUS DRIP; 14.15 MG, 5 IN 1 WK; 12.5 MG; 12MG-16MG
     Route: 041
     Dates: start: 20091116
  3. ATRACURIUM BESYLATE [Concomitant]
  4. COMPAZINE [Concomitant]

REACTIONS (3)
  - EJECTION FRACTION DECREASED [None]
  - OEDEMA [None]
  - WEIGHT INCREASED [None]
